FAERS Safety Report 8338656 (Version 4)
Quarter: 2013Q4

REPORT INFORMATION
  Report Type: Spontaneous
  Country: US (occurrence: US)
  Receive Date: 20120117
  Receipt Date: 20131231
  Transmission Date: 20140711
  Serious: Yes (Hospitalization, Other)
  Sender: FDA-Public Use
  Company Number: US-BAYER-2011-092471

PATIENT
  Age: 19 Year
  Sex: Female
  Weight: 65.76 kg

DRUGS (5)
  1. YAZ [Suspect]
     Indication: CONTRACEPTION
     Dosage: UNK
     Dates: start: 2007, end: 2010
  2. DIAZEPAM [Concomitant]
  3. IBUPROFEN [Concomitant]
     Indication: DYSMENORRHOEA
     Dosage: 600 MG, TIMES A DAY AS NEEDED
  4. IBUPROFEN [Concomitant]
     Indication: DYSMENORRHOEA
  5. FLUOXETINE [Concomitant]
     Dosage: 10 MG, DAILY

REACTIONS (13)
  - Cholecystitis acute [None]
  - Gallbladder disorder [None]
  - Pain [None]
  - Rectal haemorrhage [None]
  - Infection [None]
  - Malaise [None]
  - Weight increased [None]
  - Dyspepsia [None]
  - Injury [None]
  - General physical health deterioration [None]
  - Anxiety [None]
  - Emotional distress [None]
  - Anhedonia [None]
